FAERS Safety Report 20350711 (Version 1)
Quarter: 2022Q1

REPORT INFORMATION
  Report Type: Spontaneous
  Country: US (occurrence: None)
  Receive Date: 20220119
  Receipt Date: 20220119
  Transmission Date: 20220423
  Serious: Yes (Other)
  Sender: FDA-Public Use
  Company Number: None

PATIENT
  Sex: Female

DRUGS (6)
  1. XOLAIR [Suspect]
     Active Substance: OMALIZUMAB
     Indication: Idiopathic urticaria
     Dosage: FREQUENCY : AS DIRECTED;?
     Route: 058
     Dates: start: 20190801
  2. CETIRIZINE HCL [Concomitant]
     Active Substance: CETIRIZINE HYDROCHLORIDE
  3. DULOXETINE HYDROCHLORIDE [Concomitant]
     Active Substance: DULOXETINE HYDROCHLORIDE
  4. IBUPROFEN TAB [Concomitant]
  5. LEVOTHYROXIN TAB [Concomitant]
  6. ZANTAC TAB [Concomitant]

REACTIONS (3)
  - Pregnancy [None]
  - Exposure during pregnancy [None]
  - COVID-19 [None]
